FAERS Safety Report 7372755-8 (Version None)
Quarter: 2011Q1

REPORT INFORMATION
  Report Type: 
  Country: None (occurrence: None)
  Receive Date: 20110324
  Receipt Date: 20110324
  Transmission Date: 20110831
  Serious: Yes (Hospitalization, Other)
  Sender: FDA-Public Use
  Company Number: IE-ABBOTT-11P-229-0702458-00

PATIENT
  Sex: Female

DRUGS (46)
  1. MAGNESIUM STEARATE [Concomitant]
     Indication: PRODUCT USED FOR UNKNOWN INDICATION
  2. MAIZE STARCH [Concomitant]
     Indication: PRODUCT USED FOR UNKNOWN INDICATION
  3. METHYLCELLULOSE [Concomitant]
     Indication: PRODUCT USED FOR UNKNOWN INDICATION
  4. TITANIUM DIOXIDE [Concomitant]
     Indication: PRODUCT USED FOR UNKNOWN INDICATION
  5. TRIETHYL CITRATE [Concomitant]
     Indication: PRODUCT USED FOR UNKNOWN INDICATION
  6. CALCIUM PHOSPHATE DIBASIC [Concomitant]
     Indication: PRODUCT USED FOR UNKNOWN INDICATION
  7. MAGNESIUM STEARATE [Concomitant]
  8. SODIUM DIHYDROGEN PHOSPHATE DIHYDRATE [Suspect]
     Indication: PRODUCT USED FOR UNKNOWN INDICATION
  9. LACTOSE MONOHYDRATE PH.EUR [Concomitant]
     Indication: PRODUCT USED FOR UNKNOWN INDICATION
  10. LECITHIN [Concomitant]
     Indication: PRODUCT USED FOR UNKNOWN INDICATION
  11. OPAGLOS [Concomitant]
     Indication: PRODUCT USED FOR UNKNOWN INDICATION
  12. POLYVINYL ACETATE PHTHALATE [Concomitant]
     Indication: PRODUCT USED FOR UNKNOWN INDICATION
  13. AMLODIPINE BESYLATE [Concomitant]
     Indication: PRODUCT USED FOR UNKNOWN INDICATION
  14. DELTACORTRIL ENTERIC [Concomitant]
     Indication: PRODUCT USED FOR UNKNOWN INDICATION
     Route: 048
     Dates: start: 20100603
  15. SORBIC ACID [Concomitant]
     Indication: PRODUCT USED FOR UNKNOWN INDICATION
  16. CITRIC ACID MONOHYDRATE [Suspect]
     Indication: PRODUCT USED FOR UNKNOWN INDICATION
  17. DISODIUM PHOSPHATE DIHYDRATE [Suspect]
     Indication: PRODUCT USED FOR UNKNOWN INDICATION
  18. CELLULOSE MICROCRYSTALLINE [Concomitant]
     Indication: PRODUCT USED FOR UNKNOWN INDICATION
  19. HUMIRA [Suspect]
     Indication: POLYARTHRITIS
     Route: 058
     Dates: start: 20080101, end: 20080901
  20. MANNITOL [Suspect]
     Indication: PRODUCT USED FOR UNKNOWN INDICATION
  21. WATER FOR INJECTION [Suspect]
     Indication: PRODUCT USED FOR UNKNOWN INDICATION
  22. INDIGO CARMINE ALUMINIUM LAKE FD+C BLUE NO.2 (E132) [Concomitant]
     Indication: PRODUCT USED FOR UNKNOWN INDICATION
  23. LACTOSE ANHYDROUS [Concomitant]
     Indication: PRODUCT USED FOR UNKNOWN INDICATION
  24. POLYSORBATE 20 [Concomitant]
     Indication: PRODUCT USED FOR UNKNOWN INDICATION
  25. SILICON DIOXIDE [Concomitant]
     Indication: PRODUCT USED FOR UNKNOWN INDICATION
  26. HUMIRA [Suspect]
     Indication: COLITIS ULCERATIVE
     Route: 058
     Dates: start: 20081001, end: 20110101
  27. SODIUM CHLORIDE [Suspect]
     Indication: PRODUCT USED FOR UNKNOWN INDICATION
  28. SODIUM CITRATE [Suspect]
     Indication: PRODUCT USED FOR UNKNOWN INDICATION
  29. SODIUM HYDROXIDE [Suspect]
     Indication: PRODUCT USED FOR UNKNOWN INDICATION
  30. POLYVINYL ALCOHOL [Concomitant]
     Indication: PRODUCT USED FOR UNKNOWN INDICATION
  31. PURIFIED TALC [Concomitant]
     Indication: PRODUCT USED FOR UNKNOWN INDICATION
  32. METHOTREXATE [Concomitant]
     Indication: ARTHRITIS
     Route: 048
     Dates: start: 20080301
  33. ELTROXIN [Concomitant]
     Indication: HYPOTHYROIDISM
  34. COLLOIDAL [Concomitant]
     Indication: PRODUCT USED FOR UNKNOWN INDICATION
  35. SODIUM ALGINATE [Concomitant]
     Indication: PRODUCT USED FOR UNKNOWN INDICATION
  36. SODIUM BICARBONATE [Concomitant]
     Indication: PRODUCT USED FOR UNKNOWN INDICATION
  37. SODIUM CARBOXYLMETHYL CELLULOSE [Concomitant]
     Indication: PRODUCT USED FOR UNKNOWN INDICATION
  38. STEARIC ACID [Concomitant]
     Indication: PRODUCT USED FOR UNKNOWN INDICATION
  39. HUMIRA [Suspect]
     Indication: SERONEGATIVE ARTHRITIS
  40. POLYSORBATE 80 [Suspect]
     Indication: PRODUCT USED FOR UNKNOWN INDICATION
  41. BEESWAX WHITE, CALCIUM CARBONATE, CARMINE, CARNAUBA WAX (E903) [Concomitant]
     Indication: PRODUCT USED FOR UNKNOWN INDICATION
  42. MACROGOL 4000 [Concomitant]
     Indication: PRODUCT USED FOR UNKNOWN INDICATION
  43. PREDNISOLONE [Concomitant]
     Indication: PRODUCT USED FOR UNKNOWN INDICATION
  44. XANTHAN GUM (E145) [Concomitant]
     Indication: PRODUCT USED FOR UNKNOWN INDICATION
  45. ISTIN [Concomitant]
     Indication: HYPERTENSION
     Route: 048
     Dates: start: 20100620
  46. SODIUM STARCH GLYCOLLATE [Concomitant]
     Indication: PRODUCT USED FOR UNKNOWN INDICATION

REACTIONS (11)
  - OVARIAN CANCER [None]
  - NODULE [None]
  - HEPATIC CANCER METASTATIC [None]
  - NAUSEA [None]
  - ASCITES [None]
  - LIVER DISORDER [None]
  - GAMMA-GLUTAMYLTRANSFERASE ABNORMAL [None]
  - UTERINE CYST [None]
  - OVARIAN CANCER METASTATIC [None]
  - VOMITING [None]
  - INTESTINAL STENOSIS [None]
